FAERS Safety Report 8300849-9 (Version None)
Quarter: 2012Q2

REPORT INFORMATION
  Report Type: 
  Country: None (occurrence: None)
  Receive Date: 20120420
  Receipt Date: 20120411
  Transmission Date: 20120825
  Serious: Yes (Death, Life-Threatening, Other)
  Sender: FDA-Public Use
  Company Number: TR-ROXANE LABORATORIES, INC.-2012-RO-01045RO

PATIENT
  Age: 52 Year
  Sex: Female

DRUGS (12)
  1. DIURETICS [Suspect]
     Indication: HYPERTENSION
  2. LITHIUM CARBONATE [Suspect]
     Indication: BIPOLAR DISORDER
  3. PROPRANOLOL [Suspect]
     Indication: SUPRAVENTRICULAR TACHYCARDIA
  4. INSULINE GLARGINE [Suspect]
     Indication: DIABETES MELLITUS
  5. IRBESARTANE [Suspect]
     Indication: HYPERTENSION
  6. PHENYTOIN [Suspect]
     Indication: CONVULSION
     Dosage: 300 MG
  7. DEXAMETHASONE [Suspect]
     Indication: SUPRAVENTRICULAR TACHYCARDIA
  8. DEXAMETHASONE [Suspect]
     Indication: HYPERTHYROIDISM
     Dosage: 2 MG
  9. CHLORPROMAZINE [Suspect]
     Indication: BIPOLAR DISORDER
     Dosage: 200 MG
  10. PROPRANOLOL [Suspect]
     Indication: HYPERTHYROIDISM
     Dosage: 160 MG
  11. PROPYL-THIOURACIL [Suspect]
     Indication: SUPRAVENTRICULAR TACHYCARDIA
  12. PROPYL-THIOURACIL [Suspect]
     Indication: HYPERTHYROIDISM
     Dosage: 600 MG

REACTIONS (11)
  - NEUROTOXICITY [None]
  - ACUTE RESPIRATORY DISTRESS SYNDROME [None]
  - COMA [None]
  - SUPRAVENTRICULAR TACHYCARDIA [None]
  - DEHYDRATION [None]
  - PNEUMONIA ASPIRATION [None]
  - ELECTROENCEPHALOGRAM ABNORMAL [None]
  - TOXICITY TO VARIOUS AGENTS [None]
  - RESPIRATORY FAILURE [None]
  - RENAL FAILURE [None]
  - HYPERTHYROIDISM [None]
